FAERS Safety Report 9240901 (Version 1)
Quarter: 2013Q2

REPORT INFORMATION
  Report Type: Spontaneous
  Country: US (occurrence: None)
  Receive Date: 20130418
  Receipt Date: 20130418
  Transmission Date: 20140414
  Serious: Yes (Other)
  Sender: FDA-Public Use
  Company Number: None

PATIENT
  Age: 39 Year
  Sex: Female
  Weight: 91.4 kg

DRUGS (1)
  1. PARAGUARD [Suspect]
     Indication: CONTRACEPTION
     Dates: start: 2004, end: 20090709

REACTIONS (4)
  - Device dislocation [None]
  - Medical device complication [None]
  - Fall [None]
  - Device dislocation [None]
